FAERS Safety Report 6079588-3 (Version None)
Quarter: 2009Q1

REPORT INFORMATION
  Report Type: 
  Country: None (occurrence: None)
  Receive Date: 20090217
  Receipt Date: 20090204
  Transmission Date: 20090719
  Serious: Yes (Death)
  Sender: FDA-Public Use
  Company Number: US-JNJFOC-20060900282

PATIENT
  Sex: Male
  Weight: 77.11 kg

DRUGS (9)
  1. DURAGESIC-100 [Suspect]
     Route: 062
  2. DURAGESIC-100 [Suspect]
     Route: 062
  3. DURAGESIC-100 [Suspect]
     Indication: PAIN
     Route: 062
  4. VALIUM [Interacting]
     Indication: DRUG USE FOR UNKNOWN INDICATION
  5. EFFEXOR [Interacting]
  6. EFFEXOR [Interacting]
  7. EFFEXOR [Interacting]
     Indication: DRUG USE FOR UNKNOWN INDICATION
  8. ACTIQ [Concomitant]
  9. AMBIEN [Concomitant]

REACTIONS (4)
  - DRUG INTERACTION [None]
  - DRUG TOXICITY [None]
  - HYPOVENTILATION [None]
  - OVERDOSE [None]
